FAERS Safety Report 19635489 (Version 1)
Quarter: 2021Q3

REPORT INFORMATION
  Report Type: Spontaneous
  Country: US (occurrence: US)
  Receive Date: 20210730
  Receipt Date: 20210730
  Transmission Date: 20211014
  Serious: Yes (Death)
  Sender: FDA-Public Use
  Company Number: None

PATIENT
  Age: 74 Year
  Sex: Female

DRUGS (8)
  1. TACROLIMUS. [Suspect]
     Active Substance: TACROLIMUS
     Indication: RENAL TRANSPLANT
     Dates: start: 20190101
  2. PREDNISONE. [Concomitant]
     Active Substance: PREDNISONE
     Dates: start: 20191101
  3. BRILINTA [Concomitant]
     Active Substance: TICAGRELOR
     Dates: start: 20210126
  4. CARVEDILOL. [Concomitant]
     Active Substance: CARVEDILOL
     Dates: start: 20191101
  5. HUMULIN R [Concomitant]
     Active Substance: INSULIN HUMAN
     Dates: start: 20191028
  6. HUMULIN 70?30 [Concomitant]
     Dates: start: 20191028
  7. MYCOPHENOLIC ACID. [Suspect]
     Active Substance: MYCOPHENOLIC ACID
     Indication: RENAL TRANSPLANT
     Dates: start: 20190101
  8. GABAPENTIN. [Concomitant]
     Active Substance: GABAPENTIN
     Dates: start: 20190325

REACTIONS (3)
  - Malaise [None]
  - Renal impairment [None]
  - Cardiac dysfunction [None]

NARRATIVE: CASE EVENT DATE: 20210723
